FAERS Safety Report 5487902-2 (Version None)
Quarter: 2007Q4

REPORT INFORMATION
  Report Type: 
  Country: None (occurrence: None)
  Receive Date: 20071017
  Receipt Date: 20071008
  Transmission Date: 20080405
  Serious: Yes (Hospitalization, Other)
  Sender: FDA-Public Use
  Company Number: US-ELI_LILLY_AND_COMPANY-US200710001973

PATIENT
  Sex: Female

DRUGS (2)
  1. FORTEO [Suspect]
     Dosage: UNK, UNK
     Dates: start: 20070601
  2. FORTEO [Suspect]
     Dates: start: 20070901

REACTIONS (1)
  - FEMUR FRACTURE [None]
